FAERS Safety Report 11778979 (Version 1)
Quarter: 2015Q4

REPORT INFORMATION
  Report Type: Spontaneous
  Country: GB (occurrence: GB)
  Receive Date: 20151125
  Receipt Date: 20151125
  Transmission Date: 20160304
  Serious: Yes (Hospitalization, Other)
  Sender: FDA-Public Use
  Company Number: GB-TEVA-609946ACC

PATIENT
  Age: 90 Year
  Sex: Female
  Weight: 58.5 kg

DRUGS (4)
  1. TRIMETHOPRIM. [Concomitant]
     Active Substance: TRIMETHOPRIM
  2. NAPROXEN. [Suspect]
     Active Substance: NAPROXEN
     Indication: ANALGESIC THERAPY
     Dosage: 1000 MILLIGRAM DAILY;
     Route: 048
     Dates: start: 20151008, end: 20151101
  3. CODEINE [Concomitant]
     Active Substance: CODEINE
  4. GLYCEROL SUPPOSITORIES [Concomitant]

REACTIONS (4)
  - Gastric ulcer haemorrhage [Recovered/Resolved]
  - Chest pain [Unknown]
  - Fall [Unknown]
  - Drug prescribing error [Unknown]

NARRATIVE: CASE EVENT DATE: 20151031
